FAERS Safety Report 7164752-2 (Version None)
Quarter: 2010Q4

REPORT INFORMATION
  Report Type: 
  Country: None (occurrence: None)
  Receive Date: 20101215
  Receipt Date: 20101207
  Transmission Date: 20110411
  Serious: Yes (Other)
  Sender: FDA-Public Use
  Company Number: JP-SANOFI-AVENTIS-2010SA069830

PATIENT
  Age: 81 Year
  Sex: Male
  Weight: 60 kg

DRUGS (8)
  1. PLAVIX [Suspect]
     Indication: CEREBRAL INFARCTION
     Route: 048
     Dates: start: 20100628, end: 20100831
  2. ASPIRIN [Concomitant]
     Route: 048
     Dates: end: 20100627
  3. ASPIRIN [Concomitant]
     Route: 048
     Dates: start: 20100901
  4. LIPITOR [Concomitant]
     Route: 048
  5. ITOROL [Concomitant]
     Route: 048
  6. AMLODIPINE BESYLATE [Concomitant]
     Route: 048
  7. PURSENNID /SCH/ [Concomitant]
     Route: 048
  8. AM [Concomitant]
     Route: 048

REACTIONS (2)
  - LIVER DISORDER [None]
  - OFF LABEL USE [None]
